FAERS Safety Report 7308067-8 (Version None)
Quarter: 2011Q1

REPORT INFORMATION
  Report Type: 
  Country: None (occurrence: None)
  Receive Date: 20110223
  Receipt Date: 20100901
  Transmission Date: 20110831
  Serious: Yes (Hospitalization)
  Sender: FDA-Public Use
  Company Number: US-BAYER-201019586NA

PATIENT
  Sex: Female
  Weight: 123.36 kg

DRUGS (8)
  1. ORTHO-CEPT [Concomitant]
     Dosage: UNK
     Dates: start: 20070301
  2. OCELLA [Suspect]
     Indication: PRODUCT USED FOR UNKNOWN INDICATION
  3. ADVAIR HFA [Concomitant]
     Dosage: UNK
     Dates: start: 19990101
  4. VENTOLIN DS [Concomitant]
     Indication: ASTHMA
     Dosage: UNK
     Dates: start: 19930101
  5. YAZ [Suspect]
     Indication: PRODUCT USED FOR UNKNOWN INDICATION
     Dosage: UNK UNK, UNK
     Route: 048
  6. YASMIN [Suspect]
     Indication: PRODUCT USED FOR UNKNOWN INDICATION
     Dosage: UNK
     Route: 048
     Dates: start: 20010101, end: 20070101
  7. IBUPROFEN [Concomitant]
     Dosage: UNK
     Dates: start: 19950101
  8. ALBUTEROL INHALER [Concomitant]
     Dosage: 90 MCG PER INHALATION
     Dates: start: 19950101

REACTIONS (3)
  - PLEURITIC PAIN [None]
  - PULMONARY EMBOLISM [None]
  - MENTAL DISORDER [None]
